FAERS Safety Report 10985186 (Version 1)
Quarter: 2015Q2

REPORT INFORMATION
  Report Type: Spontaneous
  Country: US (occurrence: None)
  Receive Date: 20150403
  Receipt Date: 20150403
  Transmission Date: 20150821
  Serious: No
  Sender: FDA-Public Use
  Company Number: None

PATIENT
  Age: 72 Year
  Sex: Male

DRUGS (1)
  1. CAPECITABINE 500MG TEVA [Suspect]
     Active Substance: CAPECITABINE
     Indication: GASTRIC CANCER
     Dosage: 3000MG, MONDAY-FRIDAY
     Route: 048
     Dates: start: 20150310

REACTIONS (2)
  - Pharyngeal hypoaesthesia [None]
  - Hypoaesthesia [None]

NARRATIVE: CASE EVENT DATE: 20150331
